FAERS Safety Report 7325897-7 (Version None)
Quarter: 2011Q1

REPORT INFORMATION
  Report Type: 
  Country: None (occurrence: None)
  Receive Date: 20110216
  Receipt Date: 20110131
  Transmission Date: 20110831
  Serious: Yes (Hospitalization)
  Sender: FDA-Public Use
  Company Number: DSA_44934_2011

PATIENT
  Age: 59 Year
  Sex: Male

DRUGS (3)
  1. SIMVASTATIN [Suspect]
     Indication: HYPERCHOLESTEROLAEMIA
     Dosage: (20 MG QD ORAL)
     Route: 048
     Dates: start: 20060101, end: 20080101
  2. SIMVASTATIN [Suspect]
     Indication: CORONARY ARTERY DISEASE
     Dosage: (20 MG QD ORAL)
     Route: 048
     Dates: start: 20060101, end: 20080101
  3. DILTIAZEM HCL [Suspect]
     Indication: ANGINA PECTORIS
     Dosage: (60 MG BID ORAL) ; (30 MG BID ORAL)
     Route: 048
     Dates: start: 20080801

REACTIONS (1)
  - RHABDOMYOLYSIS [None]
